FAERS Safety Report 22260658 (Version 1)
Quarter: 2023Q2

REPORT INFORMATION
  Report Type: Spontaneous
  Country: US (occurrence: US)
  Receive Date: 20230427
  Receipt Date: 20230427
  Transmission Date: 20230721
  Serious: No
  Sender: FDA-Public Use
  Company Number: US-BRISTOL-MYERS SQUIBB COMPANY-2023-060336

PATIENT
  Age: 83 Year
  Sex: Female
  Weight: 85.73 kg

DRUGS (1)
  1. REVLIMID [Suspect]
     Active Substance: LENALIDOMIDE
     Indication: Plasma cell myeloma
     Dosage: FREQ: 21D OF 28D
     Route: 048
     Dates: start: 20201001

REACTIONS (3)
  - Emotional disorder [Unknown]
  - Confusional state [Unknown]
  - Anxiety [Unknown]
